FAERS Safety Report 23286575 (Version 1)
Quarter: 2023Q4

REPORT INFORMATION
  Report Type: Spontaneous
  Country: US (occurrence: US)
  Receive Date: 20231212
  Receipt Date: 20231212
  Transmission Date: 20240110
  Serious: No
  Sender: FDA-Public Use
  Company Number: US-SA-SAC20231206000254

PATIENT
  Age: 23 Year
  Sex: Female

DRUGS (9)
  1. DUPIXENT [Suspect]
     Active Substance: DUPILUMAB
     Indication: Dermatitis atopic
     Dosage: 1 DF, QOW
     Route: 058
     Dates: start: 20220217
  2. REMERON [Concomitant]
     Active Substance: MIRTAZAPINE
  3. VENLAFAXINE [Concomitant]
     Active Substance: VENLAFAXINE HYDROCHLORIDE
  4. PROZAC [Concomitant]
     Active Substance: FLUOXETINE HYDROCHLORIDE
  5. BUPROPION [Concomitant]
     Active Substance: BUPROPION
  6. BUSPIRONE [Concomitant]
     Active Substance: BUSPIRONE HYDROCHLORIDE
  7. QUETIAPINE [Concomitant]
     Active Substance: QUETIAPINE
  8. RITALIN [Concomitant]
     Active Substance: METHYLPHENIDATE HYDROCHLORIDE
  9. METHIONINE [Concomitant]
     Active Substance: METHIONINE

REACTIONS (3)
  - Sensitivity to weather change [Unknown]
  - Dermatitis atopic [Not Recovered/Not Resolved]
  - General physical health deterioration [Not Recovered/Not Resolved]
